FAERS Safety Report 7223209-0 (Version None)
Quarter: 2011Q1

REPORT INFORMATION
  Report Type: 
  Country: None (occurrence: None)
  Receive Date: 20110112
  Receipt Date: 20100428
  Transmission Date: 20110831
  Serious: No
  Sender: FDA-Public Use
  Company Number: US-ALLERGAN-1003178US

PATIENT
  Age: 81 Year
  Sex: Female
  Weight: 53.968 kg

DRUGS (17)
  1. GLUCOSAMINE + CHONDROITIN [Concomitant]
     Dosage: UNK
  2. NITROGLYCERIN [Concomitant]
     Dosage: UNK
  3. VITAMIN B6 [Concomitant]
     Dosage: 100 MG, QD
  4. RESTASIS [Suspect]
     Dosage: 1 GTT, BID
     Route: 047
     Dates: start: 20100216, end: 20100221
  5. CENTURY [Concomitant]
     Dosage: UNK
  6. REGLAN [Concomitant]
     Dosage: UNK
  7. REFRESH TEARS [Concomitant]
     Indication: DRY EYE
  8. ASPIRIN [Concomitant]
     Dosage: 81 MG, QD
  9. PRILOSEC [Concomitant]
     Dosage: 20 MG, QD
  10. RESTASIS [Suspect]
     Indication: DRY EYE
     Dosage: 1 GTT, BID
     Route: 047
     Dates: start: 20090623, end: 20090721
  11. TOPROL-XL [Concomitant]
     Dosage: 12.5 MG, QPM
  12. MICRO-K [Concomitant]
     Dosage: 10 MG, QD
  13. LEVOTHYROXINE [Concomitant]
     Dosage: 50 MG, QD
  14. UNIRETIC [Concomitant]
     Dosage: 1/2 TAB
  15. TYLENOL EXTRA STRENGTH [Concomitant]
     Dosage: UNK
  16. CALCIUM 600 + D [Concomitant]
     Dosage: UNK
  17. VITAMIN B-12 [Concomitant]
     Dosage: 1000 A?G, QD

REACTIONS (4)
  - EYE HAEMORRHAGE [None]
  - EYE PAIN [None]
  - VISUAL IMPAIRMENT [None]
  - EYE IRRITATION [None]
